FAERS Safety Report 17564986 (Version 1)
Quarter: 2020Q1

REPORT INFORMATION
  Report Type: Spontaneous
  Country: US (occurrence: US)
  Receive Date: 20200313
  Receipt Date: 20200313
  Transmission Date: 20200409
  Serious: Yes (Hospitalization)
  Sender: FDA-Public Use
  Company Number: None

PATIENT
  Age: 31 Year
  Sex: Female

DRUGS (1)
  1. VELETRI [Suspect]
     Active Substance: EPOPROSTENOL
     Indication: PULMONARY ARTERIAL HYPERTENSION
     Dosage: 20NG/KG/MIN CONTINUOUS IV
     Route: 042
     Dates: start: 20191015

REACTIONS (2)
  - Cerebrovascular accident [None]
  - Product contamination physical [None]

NARRATIVE: CASE EVENT DATE: 20200311
